FAERS Safety Report 23652010 (Version 2)
Quarter: 2024Q2

REPORT INFORMATION
  Report Type: Spontaneous
  Country: CA (occurrence: CA)
  Receive Date: 20240320
  Receipt Date: 20240425
  Transmission Date: 20240716
  Serious: Yes (Other)
  Sender: FDA-Public Use
  Company Number: CA-GRUNENTHAL-2024-117253

PATIENT
  Age: 43 Year
  Sex: Female

DRUGS (2)
  1. NUCYNTA ER [Suspect]
     Active Substance: TAPENTADOL HYDROCHLORIDE
     Indication: Pain
     Dosage: 150 MILLIGRAM, 4/DAY
     Route: 065
     Dates: end: 202312
  2. NUCYNTA [Suspect]
     Active Substance: TAPENTADOL HYDROCHLORIDE
     Indication: Pain
     Dosage: 50 MILLIGRAM, EVERY 4 HOURS
     Route: 065
     Dates: start: 202312, end: 202312

REACTIONS (12)
  - Loss of consciousness [Unknown]
  - Mental impairment [Unknown]
  - Therapy interrupted [None]
  - Cold sweat [Unknown]
  - Overdose [Unknown]
  - Hypotension [Unknown]
  - Lethargy [Unknown]
  - Dyspnoea [Unknown]
  - Asthenia [Unknown]
  - Feeling cold [Unknown]
  - Hyperhidrosis [Unknown]
  - Product availability issue [Unknown]

NARRATIVE: CASE EVENT DATE: 20231201
